FAERS Safety Report 8942248 (Version 1)
Quarter: 2012Q4

REPORT INFORMATION
  Report Type: Spontaneous
  Country: US (occurrence: None)
  Receive Date: 20121129
  Receipt Date: 20121129
  Transmission Date: 20130627
  Serious: Yes (Other)
  Sender: FDA-Public Use
  Company Number: None

PATIENT
  Age: 52 Year
  Sex: Female
  Weight: 68.04 kg

DRUGS (1)
  1. ATORVASTATIN [Suspect]
     Indication: CHOLESTEROL HIGH
     Dosage: one tab  1 x a day  po
     Route: 048
     Dates: start: 20121117, end: 20121121

REACTIONS (10)
  - Eyelid oedema [None]
  - Eyelid ptosis [None]
  - Erythema of eyelid [None]
  - Urticaria [None]
  - Swollen tongue [None]
  - Tongue disorder [None]
  - Pruritus [None]
  - Muscle twitching [None]
  - Erythema [None]
  - Burning sensation [None]
